FAERS Safety Report 15467261 (Version 1)
Quarter: 2018Q4

REPORT INFORMATION
  Report Type: Report from Study
  Country: ES (occurrence: ES)
  Receive Date: 20181005
  Receipt Date: 20181005
  Transmission Date: 20190204
  Serious: Yes (Other)
  Sender: FDA-Public Use
  Company Number: ES-VELOXIS PHARMACEUTICALS, INC.-2018VELES1104

PATIENT
  Age: 53 Year
  Sex: Male
  Weight: 51 kg

DRUGS (2)
  1. ENVARSUS XR [Suspect]
     Active Substance: TACROLIMUS
     Indication: IMMUNOSUPPRESSANT DRUG THERAPY
     Dosage: 6.5 MG, QD
     Route: 048
     Dates: start: 20170716, end: 20170720
  2. ENVARSUS XR [Suspect]
     Active Substance: TACROLIMUS
     Dosage: 8 MG, QD
     Route: 048
     Dates: start: 20170802, end: 20170808

REACTIONS (2)
  - Cytomegalovirus infection [Recovered/Resolved]
  - Delayed graft function [Recovered/Resolved]

NARRATIVE: CASE EVENT DATE: 20170720
